FAERS Safety Report 16828051 (Version 2)
Quarter: 2019Q4

REPORT INFORMATION
  Report Type: Spontaneous
  Country: US (occurrence: US)
  Receive Date: 20190919
  Receipt Date: 20191017
  Transmission Date: 20200122
  Serious: No
  Sender: FDA-Public Use
  Company Number: US-ASTRAZENECA-2019SF23854

PATIENT
  Sex: Female
  Weight: 80.3 kg

DRUGS (1)
  1. SYMBICORT [Suspect]
     Active Substance: BUDESONIDE\FORMOTEROL FUMARATE DIHYDRATE
     Indication: ASTHMA
     Dosage: 160/4.5, UNKNOWN UNKNOWN
     Route: 055

REACTIONS (3)
  - Dysphonia [Recovered/Resolved]
  - Vocal cord disorder [Unknown]
  - Throat irritation [Recovered/Resolved]
